FAERS Safety Report 7355134-9 (Version None)
Quarter: 2011Q1

REPORT INFORMATION
  Report Type: 
  Country: None (occurrence: None)
  Receive Date: 20110307
  Receipt Date: 20100401
  Transmission Date: 20110831
  Serious: No
  Sender: FDA-Public Use
  Company Number: AEUSA201000101

PATIENT
  Age: 65 Year
  Sex: Male

DRUGS (3)
  1. PREDNISONE [Concomitant]
  2. PROLASTIN [Suspect]
     Indication: ALPHA-1 ANTI-TRYPSIN DEFICIENCY
     Dosage: 4930 MG;QW;IV
     Route: 042
     Dates: start: 20100301
  3. MUCINEX [Suspect]

REACTIONS (3)
  - PAIN [None]
  - CHEST DISCOMFORT [None]
  - COUGH [None]
